FAERS Safety Report 8104629-9 (Version None)
Quarter: 2012Q1

REPORT INFORMATION
  Report Type: 
  Country: None (occurrence: None)
  Receive Date: 20120130
  Receipt Date: 20120125
  Transmission Date: 20120608
  Serious: Yes (Hospitalization)
  Sender: FDA-Public Use
  Company Number: PHHY2012AU007095

PATIENT
  Sex: Male

DRUGS (1)
  1. ZOLEDRONOC ACID [Suspect]
     Dosage: 5 MG, UNK
     Route: 042
     Dates: start: 20110117

REACTIONS (6)
  - HUMERUS FRACTURE [None]
  - INFLUENZA LIKE ILLNESS [None]
  - MALAISE [None]
  - ACCIDENT [None]
  - RADIUS FRACTURE [None]
  - SUBDURAL HAEMATOMA [None]
